FAERS Safety Report 7678001-X (Version None)
Quarter: 2011Q3

REPORT INFORMATION
  Report Type: 
  Country: None (occurrence: None)
  Receive Date: 20110811
  Receipt Date: 20110804
  Transmission Date: 20111222
  Serious: Yes (Hospitalization)
  Sender: FDA-Public Use
  Company Number: US-GLAXOSMITHKLINE-A0940285A

PATIENT
  Age: 62 Year
  Sex: Male
  Weight: 95.5 kg

DRUGS (1)
  1. VOTRIENT [Suspect]
     Dosage: 800MG PER DAY
     Route: 048
     Dates: start: 20110711, end: 20110721

REACTIONS (2)
  - DEHYDRATION [None]
  - RENAL IMPAIRMENT [None]
